FAERS Safety Report 10023739 (Version 1)
Quarter: 2014Q1

REPORT INFORMATION
  Report Type: Spontaneous
  Country: US (occurrence: None)
  Receive Date: 20140304
  Receipt Date: 20140304
  Transmission Date: 20141002
  Serious: Yes (Other)
  Sender: FDA-Public Use
  Company Number: RB-59382-2013

PATIENT
  Age: 53 Year
  Sex: Female

DRUGS (7)
  1. SUBOXONE (8 MG, 8 MG) [Suspect]
     Indication: DRUG DEPENDENCE
     Dosage: (16 MG SUBLINGUAL ), TAKING LESS THAN PRESCRIBED, VARIOUS DOSES BY CUTTING SUBLINGUAL)
     Route: 060
     Dates: start: 2005, end: 201303
  2. SUBOXONE 8 MG [Suspect]
     Indication: DRUG DEPENDENCE
     Dosage: (SUBOXONE FILM ; VARIOUS DOSES BY CUTTING FILM SUBLINGUAL)
     Dates: start: 201303
  3. SYNTHROID [Concomitant]
  4. LIPITOR [Concomitant]
  5. WELLBUTIN [Concomitant]
  6. TRAZODONE [Concomitant]
  7. PREMARIN [Concomitant]

REACTIONS (5)
  - Wrong technique in drug usage process [None]
  - Underdose [None]
  - Drug withdrawal syndrome [None]
  - Headache [None]
  - Hepatic enzyme increased [None]
